FAERS Safety Report 8986158 (Version 1)
Quarter: 2012Q4

REPORT INFORMATION
  Report Type: Spontaneous
  Country: US (occurrence: None)
  Receive Date: 20121025
  Receipt Date: 20121025
  Transmission Date: 20130627
  Serious: Yes (Death)
  Sender: FDA-Public Use
  Company Number: 2012SP003171

PATIENT
  Age: 22 Month
  Sex: Female

DRUGS (1)
  1. VANCOMYCIN [Suspect]
     Indication: STAPHYLOCOCCUS AUREUS BACTEREMIA

REACTIONS (16)
  - Drug reaction with eosinophilia and systemic symptoms [None]
  - Myocarditis [None]
  - Cardiac failure [None]
  - Conjunctival hyperaemia [None]
  - Hepatomegaly [None]
  - Haemoglobin decreased [None]
  - Hypoalbuminaemia [None]
  - Lymphadenopathy [None]
  - Hypotension [None]
  - Pulmonary oedema [None]
  - Thrombocytopenia [None]
  - Respiratory arrest [None]
  - Cardiac arrest [None]
  - Cardiac failure congestive [None]
  - Bronchopneumonia [None]
  - T-lymphocyte count increased [None]
